FAERS Safety Report 19406819 (Version 4)
Quarter: 2021Q3

REPORT INFORMATION
  Report Type: Report from Study
  Country: US (occurrence: US)
  Receive Date: 20210611
  Receipt Date: 20210707
  Transmission Date: 20211014
  Serious: Yes (Other)
  Sender: FDA-Public Use
  Company Number: US-MYLANLABS-2020M1103928

PATIENT
  Sex: Female
  Weight: 68.9 kg

DRUGS (3)
  1. GLATIRAMER ACETATE INJECTION [Suspect]
     Active Substance: GLATIRAMER ACETATE
     Indication: RELAPSING-REMITTING MULTIPLE SCLEROSIS
     Dosage: 40 MILLIGRAM, 3XW
     Route: 058
  2. SYNTHROID [Concomitant]
     Active Substance: LEVOTHYROXINE SODIUM
     Dosage: UNK
  3. VITAMIN D3 [Concomitant]
     Active Substance: CHOLECALCIFEROL
     Dosage: UNK

REACTIONS (10)
  - Chest pain [Not Recovered/Not Resolved]
  - Nausea [Unknown]
  - Fall [Unknown]
  - Head discomfort [Recovered/Resolved]
  - Dyspnoea [Not Recovered/Not Resolved]
  - Multiple sclerosis relapse [Unknown]
  - Presyncope [Unknown]
  - Retching [Recovered/Resolved]
  - Adverse reaction [Recovered/Resolved]
  - Pruritus [Recovered/Resolved]
